FAERS Safety Report 4621554-6 (Version None)
Quarter: 2005Q1

REPORT INFORMATION
  Report Type: 
  Country: None (occurrence: None)
  Receive Date: 20050328
  Receipt Date: 20040812
  Transmission Date: 20050727
  Serious: Yes (Hospitalization)
  Sender: FDA-Public Use
  Company Number: 8665

PATIENT
  Age: 6 Year
  Sex: Male

DRUGS (10)
  1. ACYCLOVIR [Suspect]
     Indication: HERPETIC STOMATITIS
     Dosage: 200 MG OTH; PO
     Route: 048
     Dates: start: 20040527, end: 20040527
  2. VALPROIC ACID [Concomitant]
  3. BACLOFEN [Concomitant]
  4. LEVETIRACETAM [Concomitant]
  5. BECLOMETHASONE [Concomitant]
  6. DIAZEPAM [Concomitant]
  7. HYOSCINE HBR HYT [Concomitant]
  8. SALBUTAMOL [Concomitant]
  9. CEFACLOR [Concomitant]
  10. ... [Concomitant]

REACTIONS (3)
  - EMOTIONAL DISTRESS [None]
  - OROPHARYNGEAL SWELLING [None]
  - SWOLLEN TONGUE [None]
